FAERS Safety Report 12548291 (Version 2)
Quarter: 2016Q3

REPORT INFORMATION
  Report Type: Not Available
  Country: GB (occurrence: GB)
  Receive Date: 20160712
  Receipt Date: 20160808
  Transmission Date: 20161109
  Serious: Yes (Death, Life-Threatening, Hospitalization, Disabling)
  Sender: FDA-Public Use
  Company Number: GB-PURDUE PHARMA-GBR-2016-0037655

PATIENT
  Age: 71 Year
  Sex: Male

DRUGS (9)
  1. MST [Suspect]
     Active Substance: MORPHINE SULFATE\NALTREXONE HYDROCHLORIDE
     Indication: CANCER PAIN
     Dosage: 10 MG, BID
     Route: 048
     Dates: start: 20160304, end: 20160619
  2. INSULIN GLARGINE [Concomitant]
     Active Substance: INSULIN GLARGINE
  3. ORAMORPH [Concomitant]
     Active Substance: MORPHINE SULFATE
  4. LANSOPRAZOLE. [Concomitant]
     Active Substance: LANSOPRAZOLE
  5. SPIRONOLACTONE. [Concomitant]
     Active Substance: SPIRONOLACTONE
  6. CARVEDILOL. [Concomitant]
     Active Substance: CARVEDILOL
  7. NOVORAPID [Concomitant]
     Active Substance: INSULIN ASPART
  8. ASPIRIN. [Concomitant]
     Active Substance: ASPIRIN
  9. FERROUS SULFATE. [Concomitant]
     Active Substance: FERROUS SULFATE

REACTIONS (1)
  - Toxic epidermal necrolysis [Fatal]

NARRATIVE: CASE EVENT DATE: 20160615
